FAERS Safety Report 11767710 (Version 1)
Quarter: 2015Q4

REPORT INFORMATION
  Report Type: Spontaneous
  Country: US (occurrence: None)
  Receive Date: 20151120
  Receipt Date: 20151120
  Transmission Date: 20160304
  Serious: Yes (Other)
  Sender: FDA-Public Use
  Company Number: None

PATIENT
  Age: 55 Year
  Sex: Female
  Weight: 62.14 kg

DRUGS (7)
  1. NEXIUM [Concomitant]
     Active Substance: ESOMEPRAZOLE MAGNESIUM
  2. MULTI VITAMIN [Concomitant]
     Active Substance: VITAMINS
  3. VALSARTAN. [Concomitant]
     Active Substance: VALSARTAN
  4. DUOLEXETINE [Suspect]
     Active Substance: DULOXETINE
     Indication: FIBROMYALGIA
     Dosage: 120
     Route: 048
     Dates: start: 20151117, end: 20151117
  5. SYNTHROID [Concomitant]
     Active Substance: LEVOTHYROXINE SODIUM
  6. D3 [Concomitant]
     Active Substance: 25-HYDROXYCHOLECALCIFEROL, 5-TRANS-
  7. VITAMIN C [Concomitant]
     Active Substance: ASCORBIC ACID

REACTIONS (7)
  - Gait disturbance [None]
  - Palpitations [None]
  - Asthenia [None]
  - Dizziness [None]
  - Chills [None]
  - Feeling hot [None]
  - Pruritus [None]

NARRATIVE: CASE EVENT DATE: 20151117
